FAERS Safety Report 8536506-3 (Version None)
Quarter: 2012Q3

REPORT INFORMATION
  Report Type: 
  Country: None (occurrence: None)
  Receive Date: 20120725
  Receipt Date: 20120723
  Transmission Date: 20120928
  Serious: Yes (Death, Hospitalization, Other)
  Sender: FDA-Public Use
  Company Number: PHHY2012FR061958

PATIENT
  Sex: Male

DRUGS (1)
  1. AFINITOR [Suspect]
     Indication: RENAL CANCER METASTATIC
     Dosage: 10 MG, DAILY
     Route: 048
     Dates: start: 20120101, end: 20120507

REACTIONS (10)
  - ASTHENIA [None]
  - FIBROSIS [None]
  - CYTOLYTIC HEPATITIS [None]
  - LACTIC ACIDOSIS [None]
  - VASCULAR COMPRESSION [None]
  - LYMPHADENOPATHY [None]
  - HYPERBILIRUBINAEMIA [None]
  - HEPATITIS B [None]
  - RENAL FAILURE ACUTE [None]
  - JAUNDICE [None]
